FAERS Safety Report 4281047-5 (Version None)
Quarter: 2004Q1

REPORT INFORMATION
  Report Type: 
  Country: None (occurrence: None)
  Receive Date: 20040123
  Receipt Date: 20030821
  Transmission Date: 20041129
  Serious: Yes (Other)
  Sender: FDA-Public Use
  Company Number: HQWYE305625AUG03

PATIENT
  Sex: Male

DRUGS (1)
  1. CORDARONE [Suspect]
     Dates: start: 20010821, end: 20020101

REACTIONS (1)
  - OPTIC NERVE INJURY [None]
